FAERS Safety Report 4577660-8 (Version None)
Quarter: 2005Q1

REPORT INFORMATION
  Report Type: 
  Country: None (occurrence: None)
  Receive Date: 20050210
  Receipt Date: 20041122
  Transmission Date: 20050727
  Serious: Yes (Hospitalization, Disabling)
  Sender: FDA-Public Use
  Company Number: DE-MERCK-0411DEU00471

PATIENT
  Age: 46 Year
  Sex: Female
  Weight: 87 kg

DRUGS (6)
  1. VIOXX [Suspect]
     Indication: PAIN
     Route: 048
     Dates: start: 20040331, end: 20040404
  2. VIOXX [Suspect]
     Route: 048
     Dates: start: 20040405, end: 20040501
  3. VIOXX [Suspect]
     Route: 048
     Dates: start: 19990101, end: 20040330
  4. NALOXONE HYDROCHLORIDE AND TILIDINE HYDROCHLORIDE [Concomitant]
     Route: 048
  5. AMITRIPTYLINE HYDROCHLORIDE [Concomitant]
     Route: 048
  6. DICLOFENAC SODIUM [Concomitant]
     Route: 065

REACTIONS (13)
  - CEREBROVASCULAR ACCIDENT [None]
  - DEPRESSION [None]
  - DYSPNOEA EXERTIONAL [None]
  - EMBOLISM [None]
  - ENURESIS [None]
  - HELICOBACTER GASTRITIS [None]
  - OSTEOARTHRITIS [None]
  - SLEEP DISORDER [None]
  - STAPHYLOCOCCAL INFECTION [None]
  - TREATMENT NONCOMPLIANCE [None]
  - URINARY TRACT INFECTION [None]
  - VERTEBRAL ARTERY OCCLUSION [None]
  - WEIGHT INCREASED [None]
